FAERS Safety Report 20205999 (Version 4)
Quarter: 2022Q2

REPORT INFORMATION
  Report Type: Report from Study
  Country: US (occurrence: US)
  Receive Date: 20211220
  Receipt Date: 20220507
  Transmission Date: 20220721
  Serious: No
  Sender: FDA-Public Use
  Company Number: US-NOVARTISTESTPH-NVSC2021US291041

PATIENT
  Age: 65 Year
  Sex: Female

DRUGS (1)
  1. COSENTYX [Suspect]
     Active Substance: SECUKINUMAB
     Indication: Psoriasis
     Dosage: UNK UNK, UNKNOWN
     Route: 065

REACTIONS (6)
  - Cystitis [Unknown]
  - COVID-19 [Recovering/Resolving]
  - Dry skin [Unknown]
  - Skin plaque [Unknown]
  - Psoriasis [Unknown]
  - Drug ineffective [Unknown]
